FAERS Safety Report 4889255-7 (Version None)
Quarter: 2006Q1

REPORT INFORMATION
  Report Type: 
  Country: None (occurrence: None)
  Receive Date: 20060120
  Receipt Date: 20060113
  Transmission Date: 20060701
  Serious: Yes (Other)
  Sender: FDA-Public Use
  Company Number: 006436

PATIENT
  Sex: Female

DRUGS (4)
  1. MEDROXYPROGESTERONE ACETATE [Suspect]
     Dosage: ORAL
     Route: 048
     Dates: start: 19950701, end: 20000201
  2. CYCRIN [Suspect]
     Dosage: ORAL
     Route: 048
     Dates: start: 19950701, end: 20000201
  3. PROVERA [Suspect]
     Dosage: ORAL
     Route: 048
     Dates: start: 19950701, end: 20000201
  4. ESTRADIOL [Suspect]
     Dosage: ORAL
     Route: 048
     Dates: start: 19950701, end: 20000201

REACTIONS (1)
  - BREAST CANCER FEMALE [None]
